FAERS Safety Report 9965414 (Version 1)
Quarter: 2014Q1

REPORT INFORMATION
  Report Type: Report from Study
  Country: US (occurrence: US)
  Receive Date: 20140305
  Receipt Date: 20140305
  Transmission Date: 20141002
  Serious: No
  Sender: FDA-Public Use
  Company Number: US-ABBVIE-13P-163-1126404-00

PATIENT
  Age: 70 Year
  Sex: Female

DRUGS (11)
  1. HUMIRA [Suspect]
     Indication: CROHN^S DISEASE
     Dates: start: 20120820
  2. B-12 [Concomitant]
     Indication: PRODUCT USED FOR UNKNOWN INDICATION
  3. NEO ACTIVE VITAMIN B1 [Concomitant]
     Indication: RENAL DISORDER
  4. MAGNESSIUM [Concomitant]
     Indication: MINERAL SUPPLEMENTATION
  5. OXYCODONE [Concomitant]
     Indication: PAIN
  6. XANAX [Concomitant]
     Indication: PAIN
  7. LOMOTIL [Concomitant]
     Indication: DIARRHOEA
  8. NAUSEA MEDICATION [Concomitant]
     Indication: PRODUCT USED FOR UNKNOWN INDICATION
  9. ITCHING MEDICATION THAT STARTS WITH C [Concomitant]
     Indication: PRODUCT USED FOR UNKNOWN INDICATION
  10. PROTEIN DRINK [Concomitant]
     Indication: PRODUCT USED FOR UNKNOWN INDICATION
     Dosage: BEFORE DIALYSIS
  11. LOW BLOOD PRESSURE MEDICATION [Concomitant]
     Indication: PRODUCT USED FOR UNKNOWN INDICATION

REACTIONS (2)
  - Malaise [Recovered/Resolved]
  - Nausea [Recovered/Resolved]
